FAERS Safety Report 22706286 (Version 2)
Quarter: 2024Q2

REPORT INFORMATION
  Report Type: Spontaneous
  Country: ES (occurrence: ES)
  Receive Date: 20230714
  Receipt Date: 20240415
  Transmission Date: 20240716
  Serious: Yes (Other)
  Sender: FDA-Public Use
  Company Number: ES-OTSUKA-2023_017932

PATIENT
  Age: 30 Year
  Sex: Male

DRUGS (4)
  1. ABILIFY MAINTENA [Suspect]
     Active Substance: ARIPIPRAZOLE
     Indication: Schizophrenia
     Dosage: 800 MG, QM (2 INJECTIONS OF 400 MG)
     Route: 065
  2. ABILIFY [Suspect]
     Active Substance: ARIPIPRAZOLE
     Indication: Schizophrenia
     Dosage: UP TO 25 MG
     Route: 048
  3. ABILIFY [Suspect]
     Active Substance: ARIPIPRAZOLE
     Dosage: 10 MG, QD (IN THE MORNING; AT DISCHARGE)
     Route: 048
  4. OLANZAPINE [Concomitant]
     Active Substance: OLANZAPINE
     Indication: Product used for unknown indication
     Dosage: 20 MG
     Route: 065

REACTIONS (6)
  - Blindness [Unknown]
  - Encephalitis [Unknown]
  - Cachexia [Unknown]
  - Sepsis [Unknown]
  - Behaviour disorder [Unknown]
  - Pyrexia [Unknown]
